FAERS Safety Report 12741863 (Version 6)
Quarter: 2016Q4

REPORT INFORMATION
  Report Type: Report from Study
  Country: None (occurrence: AU)
  Receive Date: 20160914
  Receipt Date: 20161201
  Transmission Date: 20170207
  Serious: Yes (Hospitalization, Other)
  Sender: FDA-Public Use
  Company Number: AU-ABBVIE-16K-008-1724940-00

PATIENT
  Age: 65 Year
  Sex: Male
  Weight: 81 kg

DRUGS (8)
  1. PANTOPRAZOLE [Concomitant]
     Active Substance: PANTOPRAZOLE SODIUM
     Indication: GASTRIC DISORDER
     Route: 048
  2. DUODOPA [Suspect]
     Active Substance: CARBIDOPA\LEVODOPA
     Indication: PARKINSON^S DISEASE
     Dosage: INFUSION 4.9MLS/H, MORNING DOSE 10 MLS, AND BOLUS 0.8-1.2MLS;
     Route: 050
     Dates: start: 20130304
  3. SINEMET CR [Concomitant]
     Active Substance: CARBIDOPA\LEVODOPA
     Indication: PARKINSON^S DISEASE
     Dosage: 200/50 AT 10 PM
     Route: 048
  4. MADOPAR [Concomitant]
     Active Substance: BENSERAZIDE HYDROCHLORIDE\LEVODOPA
     Indication: PARKINSON^S DISEASE
     Dosage: 100 MG-25 MG
     Route: 048
  5. SIFROL [Concomitant]
     Active Substance: PRAMIPEXOLE
     Indication: PARKINSON^S DISEASE
     Route: 048
  6. ZOLOFT [Concomitant]
     Active Substance: SERTRALINE HYDROCHLORIDE
     Indication: ANXIETY
     Route: 048
  7. MOVICOL [Concomitant]
     Active Substance: POLYETHYLENE GLYCOL 3350\POTASSIUM CHLORIDE\SODIUM BICARBONATE\SODIUM CHLORIDE
     Indication: CONSTIPATION
     Route: 048
  8. ENDEP [Concomitant]
     Active Substance: AMITRIPTYLINE HYDROCHLORIDE
     Indication: ANXIETY
     Route: 048

REACTIONS (17)
  - Purulence [Recovered/Resolved]
  - Gastric perforation [Recovered/Resolved]
  - Device dislocation [Unknown]
  - Anxiety [Unknown]
  - Stoma site discharge [Recovering/Resolving]
  - Spondylolisthesis [Unknown]
  - Spinal column injury [Unknown]
  - C-reactive protein increased [Unknown]
  - On and off phenomenon [Unknown]
  - Enterocutaneous fistula [Recovered/Resolved]
  - Oesophagitis [Unknown]
  - Blood creatinine decreased [Unknown]
  - Nerve root compression [Unknown]
  - Stoma site hypergranulation [Unknown]
  - Stoma site haemorrhage [Unknown]
  - Posture abnormal [Unknown]
  - Hiatus hernia [Unknown]

NARRATIVE: CASE EVENT DATE: 20160909
